FAERS Safety Report 4750042-1 (Version None)
Quarter: 2005Q3

REPORT INFORMATION
  Report Type: 
  Country: None (occurrence: None)
  Receive Date: 20050822
  Receipt Date: 20050809
  Transmission Date: 20060218
  Serious: Yes (Hospitalization)
  Sender: FDA-Public Use
  Company Number: DEU-2005-0001622

PATIENT
  Age: 73 Year
  Sex: Female

DRUGS (13)
  1. OXYGESIC 10 MG (OXYCODONE HYDROCHLORIDE, OXYCODONE HYDROCHLORIDE) CR T [Suspect]
     Indication: SACRAL PAIN
     Dosage: 10 MG, BID, ORAL
     Route: 048
     Dates: start: 20050201, end: 20050601
  2. IRFEN (IBUPROFEN) [Suspect]
     Indication: SACRAL PAIN
     Dosage: 800 MG , BID, ORAL
     Route: 048
     Dates: start: 20050201, end: 20050601
  3. ASPIRIN [Suspect]
     Dosage: 100 MG, Q24H, ORAL
     Route: 048
  4. CO-RENITEN (HYDROCHLOROTHIAZIDE, ENALAPRIL MALEATE) [Suspect]
     Dosage: 1 UNIT, Q24TH, ORAL
     Route: 048
     Dates: end: 20050601
  5. GLUCOPHAGE [Concomitant]
  6. TOLTERODINE TARTRATE [Concomitant]
  7. ENOXAPARIN SODIUM [Concomitant]
  8. CARDURA [Concomitant]
  9. SELIPRAN (PRABASTATIN SODIUM) [Concomitant]
  10. LANTUS [Concomitant]
  11. METOPROLOL FUMARATE (METOPROLOL FUMARATE) [Concomitant]
  12. LEVOTHYROXINE SODIUM [Concomitant]
  13. PANTOPRAZOLE SODIUM [Concomitant]

REACTIONS (5)
  - ANOREXIA [None]
  - CONSTIPATION [None]
  - FAECALOMA [None]
  - NAUSEA [None]
  - RENAL FAILURE ACUTE [None]
